FAERS Safety Report 15793963 (Version 1)
Quarter: 2019Q1

REPORT INFORMATION
  Report Type: Report from Study
  Country: KR (occurrence: KR)
  Receive Date: 20190107
  Receipt Date: 20190107
  Transmission Date: 20190417
  Serious: Yes (Hospitalization)
  Sender: FDA-Public Use
  Company Number: KR-SA-2018SA242640

PATIENT
  Age: 52 Year
  Sex: Male

DRUGS (4)
  1. CILOSTAZOL;GINKGO BILOBA [Concomitant]
     Indication: GLUCOSE TOLERANCE IMPAIRED
     Dosage: UNK
     Dates: start: 20170705
  2. INSULIN GLARGINE [Suspect]
     Active Substance: INSULIN GLARGINE
     Indication: TYPE 2 DIABETES MELLITUS
     Dosage: 6 IU, QD
     Dates: start: 20170705, end: 20171017
  3. METFORMIN HCL [Concomitant]
     Active Substance: METFORMIN HYDROCHLORIDE
     Indication: TYPE 2 DIABETES MELLITUS
     Dosage: UNK
     Dates: start: 20170705
  4. LINOLENIC ACID [Concomitant]
     Active Substance: LINOLENIC ACID
     Indication: GLUCOSE TOLERANCE IMPAIRED
     Dosage: UNK
     Dates: start: 20170705

REACTIONS (1)
  - Intervertebral disc protrusion [Recovered/Resolved with Sequelae]

NARRATIVE: CASE EVENT DATE: 20171222
